FAERS Safety Report 4632921-9 (Version None)
Quarter: 2005Q2

REPORT INFORMATION
  Report Type: 
  Country: None (occurrence: None)
  Receive Date: 20050412
  Receipt Date: 20050328
  Transmission Date: 20051028
  Serious: Yes (Hospitalization)
  Sender: FDA-Public Use
  Company Number: US-JNJFOC-20050204944

PATIENT
  Sex: Female

DRUGS (5)
  1. IBUPROFEN [Suspect]
     Route: 049
  2. IBUPROFEN [Suspect]
     Indication: ARTHRITIS
     Route: 049
  3. GABAPENTIN [Concomitant]
  4. CELECOXIB [Concomitant]
  5. ROFECOXIB [Concomitant]

REACTIONS (6)
  - DRUG INEFFECTIVE [None]
  - GASTRIC HAEMORRHAGE [None]
  - GASTRIC ULCER [None]
  - NAUSEA [None]
  - VOMITING [None]
  - WEIGHT DECREASED [None]
